FAERS Safety Report 5575201-X (Version None)
Quarter: 2007Q4

REPORT INFORMATION
  Report Type: 
  Country: None (occurrence: None)
  Receive Date: 20071227
  Receipt Date: 20071217
  Transmission Date: 20080405
  Serious: Yes (Hospitalization, Other)
  Sender: FDA-Public Use
  Company Number: US-ELI_LILLY_AND_COMPANY-US200712003455

PATIENT
  Sex: Female

DRUGS (2)
  1. FORTEO [Suspect]
     Indication: OSTEOPOROSIS
     Dates: start: 20070701, end: 20070101
  2. FLU [Concomitant]
     Dates: start: 20070101

REACTIONS (9)
  - ADRENAL MASS [None]
  - ASTHENIA [None]
  - BACK PAIN [None]
  - EPSTEIN-BARR VIRUS INFECTION [None]
  - FEELING ABNORMAL [None]
  - GUILLAIN-BARRE SYNDROME [None]
  - NAUSEA [None]
  - PAIN [None]
  - RASH [None]
